FAERS Safety Report 16367222 (Version 1)
Quarter: 2019Q2

REPORT INFORMATION
  Report Type: Spontaneous
  Country: US (occurrence: US)
  Receive Date: 20190529
  Receipt Date: 20190529
  Transmission Date: 20190711
  Serious: No
  Sender: FDA-Public Use
  Company Number: US-ASTRAZENECA-2019SE67433

PATIENT
  Age: 21033 Day
  Sex: Male
  Weight: 96.2 kg

DRUGS (3)
  1. ALBUTEROL-IPRATROPIUM BROMIDE [Concomitant]
     Indication: KUSSMAUL RESPIRATION
     Dosage: AS REQUIRED
     Route: 055
  2. DULERA [Concomitant]
     Active Substance: FORMOTEROL FUMARATE DIHYDRATE\MOMETASONE FUROATE
     Indication: WHEEZING
     Dosage: AS REQUIRED
     Route: 055
  3. TUDORZA PRESSAIR [Suspect]
     Active Substance: ACLIDINIUM BROMIDE
     Indication: CHRONIC OBSTRUCTIVE PULMONARY DISEASE
     Route: 055
     Dates: start: 20190410, end: 20190419

REACTIONS (6)
  - Feeling abnormal [Recovered/Resolved]
  - Pharyngeal swelling [Recovered/Resolved]
  - Drug ineffective [Recovering/Resolving]
  - Paraesthesia oral [Recovered/Resolved]
  - Pharyngeal paraesthesia [Recovered/Resolved]
  - Lip swelling [Recovered/Resolved]

NARRATIVE: CASE EVENT DATE: 20190419
